FAERS Safety Report 6152617-4 (Version None)
Quarter: 2009Q2

REPORT INFORMATION
  Report Type: 
  Country: None (occurrence: None)
  Receive Date: 20090409
  Receipt Date: 20090330
  Transmission Date: 20091009
  Serious: Yes (Life-Threatening, Hospitalization, Disabling)
  Sender: FDA-Public Use
  Company Number: SP01272

PATIENT
  Age: 45 Year
  Sex: Female
  Weight: 71.2147 kg

DRUGS (19)
  1. OSMOPREP [Suspect]
     Indication: COLONOSCOPY
     Dosage: 32 TABS IN ONE EVENING, ORAL
     Route: 048
     Dates: start: 20070523, end: 20070523
  2. OSMOPREP [Suspect]
     Indication: PREOPERATIVE CARE
     Dosage: 32 TABS IN ONE EVENING, ORAL
     Route: 048
     Dates: start: 20070523, end: 20070523
  3. NALTREXONE HYDROCHLORIDE [Concomitant]
  4. SKELAXIN TABLETS [Concomitant]
  5. URSODIOL (CAPSULES) [Concomitant]
  6. IBUPROFEN [Concomitant]
  7. ALPRAZOLAM [Concomitant]
  8. SERTRALINE HCL [Concomitant]
  9. PROMETHAZINE [Concomitant]
  10. PRILOSEC OTC [Concomitant]
  11. DULCOLAX [Concomitant]
  12. LACTULOSE [Concomitant]
  13. CALCIUM WITH VITAMIN D [Concomitant]
  14. VITAMIN A [Concomitant]
  15. BENEFIBER [Concomitant]
  16. BENADRYL [Concomitant]
  17. GAS-X [Concomitant]
  18. MULTI-VITAMIN [Concomitant]
  19. VIVELLE [Concomitant]

REACTIONS (10)
  - HYPERPHOSPHATAEMIA [None]
  - HYPERTENSION [None]
  - HYPOAESTHESIA [None]
  - HYPOCALCAEMIA [None]
  - HYPOMAGNESAEMIA [None]
  - HYPONATRAEMIA [None]
  - PARAESTHESIA [None]
  - RENAL FAILURE ACUTE [None]
  - RENAL TUBULAR NECROSIS [None]
  - TENSION HEADACHE [None]
